FAERS Safety Report 8417564-3 (Version None)
Quarter: 2012Q2

REPORT INFORMATION
  Report Type: 
  Country: None (occurrence: None)
  Receive Date: 20120606
  Receipt Date: 20120530
  Transmission Date: 20120825
  Serious: Yes (Hospitalization)
  Sender: FDA-Public Use
  Company Number: GB-BAXTER-2011BH033115

PATIENT
  Sex: Female
  Weight: 12.7 kg

DRUGS (31)
  1. IFOSFAMIDE [Suspect]
     Indication: SARCOMA METASTATIC
     Dosage: DADYS 1 AND 2
     Route: 042
     Dates: start: 20110712
  2. MESNA [Suspect]
     Route: 042
     Dates: start: 20110921
  3. ONDANSETRON [Concomitant]
     Route: 048
     Dates: start: 20110901, end: 20110907
  4. ONDANSETRON [Concomitant]
     Route: 048
     Dates: start: 20110927
  5. LEVOMEPROMAZINE [Concomitant]
     Route: 042
     Dates: start: 20110713
  6. DOCUSATE [Concomitant]
     Route: 048
     Dates: start: 20111125
  7. GENTAMYCIN SULFATE [Concomitant]
     Route: 042
     Dates: start: 20110817, end: 20110824
  8. PIPERACILLIN AND TAZOBACTAM [Concomitant]
     Dosage: 1070 QDS
     Route: 042
     Dates: start: 20110901, end: 20110907
  9. ONDANSETRON [Concomitant]
     Route: 048
     Dates: start: 20111125, end: 20111129
  10. NEUPOGEN [Concomitant]
     Route: 042
     Dates: start: 20110903
  11. MESNA [Suspect]
     Route: 042
  12. LEVOMEPROMAZINE [Concomitant]
     Route: 042
     Dates: start: 20111125, end: 20111127
  13. DOCUSATE [Concomitant]
     Route: 048
     Dates: start: 20111230
  14. MESNA [Suspect]
     Indication: SARCOMA METASTATIC
     Route: 042
     Dates: start: 20110712
  15. CYCLOPHOSPHAMIDE [Suspect]
     Indication: RHABDOMYOSARCOMA
     Dosage: 11 MG
     Route: 048
     Dates: start: 20120301
  16. DOXORUBICIN HCL [Suspect]
     Indication: SARCOMA METASTATIC
     Dosage: DAYS 1 AND 2
     Route: 042
     Dates: start: 20110712
  17. DACTINOMYCIN [Suspect]
     Indication: SARCOMA METASTATIC
     Dosage: DAY 1 OF CYCLE
     Route: 042
     Dates: start: 20110712
  18. FLUCONAZOLE [Concomitant]
     Route: 042
  19. DOCUSATE [Concomitant]
     Route: 048
     Dates: start: 20110714
  20. DIHYDROCODEINE BITARTRATE INJ [Concomitant]
     Route: 048
     Dates: start: 20110928
  21. VINCRISTINE [Suspect]
     Indication: SARCOMA METASTATIC
     Dosage: DAYS 1, 8 AND 15 OF CYCLE
     Route: 042
     Dates: start: 20110712
  22. BEVACIZUMAB [Suspect]
     Indication: SARCOMA METASTATIC
     Route: 042
     Dates: start: 20110712
  23. ONDANSETRON [Concomitant]
     Route: 048
     Dates: start: 20110817
  24. MOVICOL                            /01625101/ [Concomitant]
     Dosage: 2 SACHETS
     Route: 065
     Dates: start: 20110820
  25. MOVICOL                            /01625101/ [Concomitant]
     Dosage: 1 SACHETS
     Route: 004
     Dates: start: 20110901, end: 20110907
  26. NEUPOGEN [Concomitant]
     Route: 042
     Dates: start: 20110924
  27. NAVELBINE [Suspect]
     Indication: RHABDOMYOSARCOMA
     Route: 042
     Dates: start: 20120301
  28. ACETAMINOPHEN [Concomitant]
     Route: 048
     Dates: start: 20110817
  29. MORPHINE [Concomitant]
     Route: 048
     Dates: start: 20110817
  30. MOVICOL                            /01625101/ [Concomitant]
     Dosage: 2 SACHETS
     Route: 065
     Dates: start: 20120326
  31. COTRIM [Concomitant]
     Route: 048
     Dates: start: 20110716

REACTIONS (4)
  - MUCOSAL INFLAMMATION [None]
  - FUNGAEMIA [None]
  - EPISTAXIS [None]
  - FEBRILE NEUTROPENIA [None]
